FAERS Safety Report 4689209-X (Version None)
Quarter: 2005Q2

REPORT INFORMATION
  Report Type: 
  Country: None (occurrence: None)
  Receive Date: 20050608
  Receipt Date: 20050228
  Transmission Date: 20051028
  Serious: No
  Sender: FDA-Public Use
  Company Number: 2005-BP-00740BP

PATIENT
  Age: 76 Year
  Sex: Female

DRUGS (8)
  1. SPIRIVA [Suspect]
     Indication: PULMONARY CONGESTION
     Dosage: 18 MCG (18 MCG), IH
     Route: 055
     Dates: start: 20050105, end: 20050105
  2. SPIRIVA [Suspect]
  3. PREVACID [Concomitant]
  4. ASA(ACETYLSALICYCIL ACID) [Concomitant]
  5. SYNTHROID [Concomitant]
  6. LASIX [Concomitant]
  7. PLAVIX [Concomitant]
  8. SYSTANE [Concomitant]

REACTIONS (3)
  - EYE PAIN [None]
  - HEADACHE [None]
  - NECK PAIN [None]
